FAERS Safety Report 22026134 (Version 1)
Quarter: 2023Q1

REPORT INFORMATION
  Report Type: Spontaneous
  Country: US (occurrence: None)
  Receive Date: 20230223
  Receipt Date: 20230223
  Transmission Date: 20230418
  Serious: No
  Sender: FDA-Public Use
  Company Number: US-ROCHE-3163305

PATIENT
  Age: 31 Year
  Sex: Female
  Weight: 122.58 kg

DRUGS (7)
  1. XOLAIR [Suspect]
     Active Substance: OMALIZUMAB
     Indication: Urticaria chronic
     Dosage: 2 SYRINGES USED EVERY 28 DAYS
     Route: 058
     Dates: start: 2019
  2. XOLAIR [Suspect]
     Active Substance: OMALIZUMAB
  3. XOLAIR [Suspect]
     Active Substance: OMALIZUMAB
  4. HUMIRA [Concomitant]
     Active Substance: ADALIMUMAB
  5. INSULIN NOS [Concomitant]
     Active Substance: INSULIN NOS
     Indication: Diabetes mellitus
     Dosage: CONTINUOUS PUMP (80-200 UNITS A DAY)
  6. NORDITROPIN [Concomitant]
     Active Substance: SOMATROPIN
     Indication: Blood growth hormone
     Dosage: SHE NOT SURE OF DOSAGE
  7. SYNTHROID [Concomitant]
     Active Substance: LEVOTHYROXINE SODIUM
     Indication: Hypothyroidism

REACTIONS (5)
  - Syringe issue [Unknown]
  - Underdose [Unknown]
  - Product complaint [Unknown]
  - No adverse event [Unknown]
  - Device operational issue [Unknown]

NARRATIVE: CASE EVENT DATE: 20220816
